FAERS Safety Report 5901720-X (Version None)
Quarter: 2008Q3

REPORT INFORMATION
  Report Type: 
  Country: None (occurrence: None)
  Receive Date: 20080929
  Receipt Date: 20080922
  Transmission Date: 20090109
  Serious: Yes (Other)
  Sender: FDA-Public Use
  Company Number: B0538103A

PATIENT
  Age: 28 Year
  Sex: Female

DRUGS (3)
  1. BUPROPION HYDROCHLORIDE [Suspect]
     Route: 048
     Dates: start: 20080826, end: 20080907
  2. DESOGESTREL [Concomitant]
     Dates: start: 20080904
  3. NICOTINE [Concomitant]
     Dates: start: 20080908

REACTIONS (4)
  - ANOREXIA [None]
  - HALLUCINATION, AUDITORY [None]
  - MALAISE [None]
  - PARANOIA [None]
